FAERS Safety Report 20213434 (Version 2)
Quarter: 2024Q3

REPORT INFORMATION
  Report Type: Spontaneous
  Country: CN (occurrence: CN)
  Receive Date: 20211221
  Receipt Date: 20240828
  Transmission Date: 20241016
  Serious: Yes (Hospitalization)
  Sender: PFIZER
  Company Number: CN-PFIZER INC-202101760716

PATIENT
  Age: 67 Year
  Sex: Female
  Weight: 71 kg

DRUGS (10)
  1. MEDROL [Suspect]
     Active Substance: METHYLPREDNISOLONE
     Indication: Inflammation
     Dosage: 6 MG, 1X/DAY
     Route: 048
     Dates: start: 20211001, end: 20211003
  2. CEFOPERAZONE SODIUM\SULBACTAM SODIUM [Suspect]
     Active Substance: CEFOPERAZONE SODIUM\SULBACTAM SODIUM
     Indication: Pneumonia
     Dosage: 3.000 G, 1X/DAY
     Route: 041
     Dates: start: 20211003, end: 20211013
  3. SOLU-MEDROL [Suspect]
     Active Substance: METHYLPREDNISOLONE SODIUM SUCCINATE
     Indication: Inflammation
     Dosage: 40 MG, 1X/DAY
     Route: 041
     Dates: start: 20211003, end: 20211009
  4. PULMICORT TURBUHALER [Suspect]
     Active Substance: BUDESONIDE
     Indication: Asthma
     Dosage: 2.000000 MG, 2X/DAY
     Dates: start: 20210930, end: 20211014
  5. BRICANYL [Suspect]
     Active Substance: TERBUTALINE SULFATE
     Indication: Asthma
     Dosage: 5.000 MG, 2X/DAY
     Dates: start: 20210930, end: 20211014
  6. LIPITOR [Concomitant]
     Active Substance: ATORVASTATIN CALCIUM
     Indication: Lipids abnormal
     Dosage: 20.000 MG, 1X/DAY
     Route: 048
     Dates: start: 20211004, end: 20211004
  7. ASMETON [Concomitant]
     Active Substance: AMINOPHYLLINE\CHLORPHENIRAMINE MALEATE\METHOXYPHENAMINE HYDROCHLORIDE\NOSCAPINE
     Indication: Antitussive therapy
     Dosage: 2.000 DF, 3X/DAY
     Route: 048
     Dates: start: 20211002, end: 20211002
  8. DOXOFYLLINE [Concomitant]
     Active Substance: DOXOFYLLINE
     Indication: Antitussive therapy
     Dosage: 0.200 G, 2X/DAY
     Route: 048
     Dates: start: 20210930, end: 20211004
  9. LEFLUNOMIDE [Concomitant]
     Active Substance: LEFLUNOMIDE
     Indication: Arthritis
     Dosage: 20.000 MG, 1X/DAY
     Route: 048
     Dates: start: 20211001, end: 20211001
  10. RABEPRAZOLE SODIUM [Concomitant]
     Active Substance: RABEPRAZOLE SODIUM
     Indication: Therapeutic procedure
     Dosage: 20.000 MG, 1X/DAY
     Route: 048
     Dates: start: 20211001, end: 20211001

REACTIONS (4)
  - Headache [Recovered/Resolved]
  - Feeling cold [Recovered/Resolved]
  - Body temperature increased [Recovered/Resolved]
  - Vomiting [Recovered/Resolved]

NARRATIVE: CASE EVENT DATE: 20211011
